FAERS Safety Report 12792564 (Version 1)
Quarter: 2016Q3

REPORT INFORMATION
  Report Type: Spontaneous
  Country: US (occurrence: US)
  Receive Date: 20160926
  Receipt Date: 20160926
  Transmission Date: 20161109
  Serious: Yes (Other)
  Sender: FDA-Public Use
  Company Number: None

PATIENT
  Age: 14 Year
  Sex: Female
  Weight: 45 kg

DRUGS (3)
  1. 5F-DICLOFENAC3/GABAPENTING/LIDOCAINE BIOMED [Suspect]
     Active Substance: DICLOFENAC\GABAPENTIN\LIDOCAINE
     Indication: ARTHRALGIA
     Route: 061
     Dates: start: 20160908, end: 20160922
  2. IBUPROFEN. [Concomitant]
     Active Substance: IBUPROFEN
  3. RITALIN [Concomitant]
     Active Substance: METHYLPHENIDATE HYDROCHLORIDE

REACTIONS (3)
  - Application site swelling [None]
  - Application site urticaria [None]
  - Application site pain [None]

NARRATIVE: CASE EVENT DATE: 20160924
